FAERS Safety Report 5068818-2 (Version None)
Quarter: 2006Q3

REPORT INFORMATION
  Report Type: 
  Country: None (occurrence: None)
  Receive Date: 20060802
  Receipt Date: 20060414
  Transmission Date: 20061208
  Serious: Yes (Hospitalization, Other)
  Sender: FDA-Public Use
  Company Number: US-BRISTOL-MYERS SQUIBB COMPANY-13347224

PATIENT
  Age: 59 Year
  Sex: Male
  Weight: 107 kg

DRUGS (9)
  1. COUMADIN [Suspect]
     Indication: ATRIAL FIBRILLATION
     Dosage: STARTED ON ^GENERIC^ WARFARIN FOR FOUR TO FIVE MONTHS, STARTED BMS BRAND 15 MG DAILY ON 07-APR-2006
     Route: 048
     Dates: start: 20051229
  2. LIPITOR [Concomitant]
  3. VERAPAMIL [Concomitant]
  4. LISINOPRIL AND HYDROCHLOROTHIAZIDE [Concomitant]
  5. OXYCODONE HCL [Concomitant]
  6. DIAZEPAM [Concomitant]
  7. CO-Q-10 [Concomitant]
  8. FISH OIL [Concomitant]
  9. ASPIRIN [Concomitant]

REACTIONS (5)
  - ASTHENIA [None]
  - DIZZINESS [None]
  - INTERNATIONAL NORMALISED RATIO DECREASED [None]
  - THROMBOSIS [None]
  - TRANSIENT ISCHAEMIC ATTACK [None]
